FAERS Safety Report 9916223 (Version 1)
Quarter: 2014Q1

REPORT INFORMATION
  Report Type: Spontaneous
  Country: US (occurrence: None)
  Receive Date: 20140219
  Receipt Date: 20140219
  Transmission Date: 20141002
  Serious: Yes (Hospitalization, Other)
  Sender: FDA-Public Use
  Company Number: UTC-044284

PATIENT
  Age: 69 Year
  Sex: Female
  Weight: 59.5 kg

DRUGS (3)
  1. REMODULIN [Suspect]
     Indication: PULMONARY ARTERIAL HYPERTENSION
     Dates: start: 20130118
  2. ADCIRCA [Concomitant]
  3. WARFARIN [Concomitant]

REACTIONS (2)
  - Device dislocation [None]
  - Drug dose omission [None]
